FAERS Safety Report 14898631 (Version 3)
Quarter: 2018Q4

REPORT INFORMATION
  Report Type: Spontaneous
  Country: FR (occurrence: FR)
  Receive Date: 20180515
  Receipt Date: 20181012
  Transmission Date: 20190204
  Serious: Yes (Hospitalization)
  Sender: FDA-Public Use
  Company Number: FR-009507513-1804FRA000823

PATIENT
  Age: 67 Year
  Sex: Male
  Weight: 78 kg

DRUGS (5)
  1. AXEPIM [Concomitant]
     Active Substance: CEFEPIME HYDROCHLORIDE
     Dosage: 6 G, QD
     Route: 042
     Dates: start: 20180209, end: 20180213
  2. OFLOCET (OFLOXACIN) [Concomitant]
     Active Substance: OFLOXACIN
     Dosage: 400 MG, QD
     Route: 048
     Dates: start: 20180213
  3. CUBICIN [Suspect]
     Active Substance: DAPTOMYCIN
     Indication: OSTEOMYELITIS
     Dosage: 850 MG, QD
     Route: 042
     Dates: start: 20180124, end: 20180306
  4. ROCEPHIN [Concomitant]
     Active Substance: CEFTRIAXONE SODIUM
     Dosage: 4 G, QD
     Route: 042
     Dates: start: 20180213, end: 20180224
  5. ZYVOXID [Concomitant]
     Active Substance: LINEZOLID
     Dosage: 1200 MG, QD
     Route: 048
     Dates: start: 20180307

REACTIONS (2)
  - Eosinophilia [Recovering/Resolving]
  - Eosinophilic pneumonia acute [Recovering/Resolving]

NARRATIVE: CASE EVENT DATE: 20180204
